FAERS Safety Report 10616374 (Version 1)
Quarter: 2014Q4

REPORT INFORMATION
  Report Type: Spontaneous
  Country: DE (occurrence: DE)
  Receive Date: 20141201
  Receipt Date: 20141201
  Transmission Date: 20150529
  Serious: Yes (Hospitalization)
  Sender: FDA-Public Use
  Company Number: DE-ELI_LILLY_AND_COMPANY-DE201411008099

PATIENT
  Age: 79 Year
  Sex: Female

DRUGS (26)
  1. NOVALGIN [Suspect]
     Active Substance: METAMIZOLE SODIUM
     Indication: PRODUCT USED FOR UNKNOWN INDICATION
     Dosage: 1500 MG, QD
     Route: 048
     Dates: start: 20121120, end: 20121214
  2. METHOTREXATE (METHOTREXATE SODIUM) [Suspect]
     Active Substance: METHOTREXATE SODIUM
     Indication: PRODUCT USED FOR UNKNOWN INDICATION
     Dosage: 15 MG, WEEKLY (1/W)
     Route: 048
     Dates: end: 20121226
  3. OXAZEPAM. [Concomitant]
     Active Substance: OXAZEPAM
     Dosage: 17.5 - 5 MG, UNKNOWN
     Route: 048
     Dates: start: 20121212, end: 20130210
  4. SIMVASTATIN. [Concomitant]
     Active Substance: SIMVASTATIN
     Dosage: 20 MG, UNKNOWN
     Route: 048
  5. TILIDINE [Concomitant]
     Active Substance: TILIDINE
     Dosage: 112/9 MG, UNKNOWN
     Route: 048
  6. ALENDRONIC ACID [Concomitant]
     Active Substance: ALENDRONIC ACID
     Dosage: 70 MG, WEEKLY (1/W)
     Route: 048
     Dates: start: 20130101
  7. LAXOBERAL [Concomitant]
     Active Substance: SODIUM PICOSULFATE
     Dosage: 10GTT DROPS, PRN
     Route: 048
     Dates: start: 20121223
  8. LAXOBERAL [Concomitant]
     Active Substance: SODIUM PICOSULFATE
     Dosage: 10GTT DROPS, PRN
     Route: 048
     Dates: start: 20121228
  9. ASPIRIN. [Concomitant]
     Active Substance: ASPIRIN
     Dosage: 100 MG, UNKNOWN
     Route: 048
  10. LAXOBERAL [Concomitant]
     Active Substance: SODIUM PICOSULFATE
     Dosage: 10 GTT DROPS, UNKNOWN
     Route: 048
     Dates: start: 20121229
  11. NOVALGIN [Suspect]
     Active Substance: METAMIZOLE SODIUM
     Dosage: 1000 MG, QD
     Route: 048
     Dates: start: 20121215, end: 20121219
  12. ALENDRONIC ACID [Concomitant]
     Active Substance: ALENDRONIC ACID
     Dosage: UNK, UNKNOWN
     Route: 065
     Dates: start: 20121210, end: 20121224
  13. PANTOZOL [Concomitant]
     Active Substance: PANTOPRAZOLE SODIUM
     Dosage: 20 MG, UNKNOWN
     Route: 048
  14. LAXOBERAL [Concomitant]
     Active Substance: SODIUM PICOSULFATE
     Dosage: 10GTT DROPS, UNKNOWN
     Route: 048
     Dates: start: 20131227
  15. CYMBALTA [Suspect]
     Active Substance: DULOXETINE HYDROCHLORIDE
     Dosage: 60 MG, QD
     Route: 048
     Dates: start: 20121220, end: 20121226
  16. CYMBALTA [Suspect]
     Active Substance: DULOXETINE HYDROCHLORIDE
     Dosage: 30 MG, QD
     Route: 048
     Dates: start: 20130109, end: 20130117
  17. METHOTREXATE (METHOTREXATE SODIUM) [Suspect]
     Active Substance: METHOTREXATE SODIUM
     Dosage: 15 MG, WEEKLY (1/W)
     Route: 048
     Dates: start: 20130102
  18. ALENDRONIC ACID [Concomitant]
     Active Substance: ALENDRONIC ACID
     Dosage: 70 MG, WEEKLY (1/W)
     Route: 048
     Dates: end: 20121210
  19. IBUPROFEN. [Concomitant]
     Active Substance: IBUPROFEN
     Dosage: 400 - 800 MG, UNKNOWN
     Route: 048
     Dates: start: 20121222
  20. CLOPIDOGREL [Concomitant]
     Active Substance: CLOPIDOGREL BISULFATE
     Dosage: 75 MG, UNKNOWN
     Route: 048
  21. ISOKET RETARD [Concomitant]
     Dosage: 40 MG, UNKNOWN
     Route: 048
  22. VITAMIN B COMPLEX [Concomitant]
     Active Substance: CYANOCOBALAMIN\DEXPANTHENOL\NIACINAMIDE\PYRIDOXINE HYDROCHLORIDE\RIBOFLAVIN 5^-PHOSPHATE SODIUM\THIAMINE HYDROCHLORIDE\VITAMIN B COMPLEX
     Dosage: 600 MG, UNKNOWN
     Route: 048
     Dates: start: 20121212, end: 20130114
  23. CYMBALTA [Suspect]
     Active Substance: DULOXETINE HYDROCHLORIDE
     Indication: PRODUCT USED FOR UNKNOWN INDICATION
     Dosage: 30 MG, QD
     Route: 048
     Dates: start: 20121213, end: 20121219
  24. METOPROLOL [Concomitant]
     Active Substance: METOPROLOL
  25. FOLSAN [Concomitant]
     Active Substance: FOLIC ACID
     Dosage: 5 MG, UNKNOWN
     Route: 065
     Dates: end: 20130101
  26. LAXOBERAL [Concomitant]
     Active Substance: SODIUM PICOSULFATE
     Dosage: 10 GTT DROPS, UNKNOWN
     Route: 048
     Dates: start: 20130404

REACTIONS (2)
  - Neutropenia [Recovering/Resolving]
  - Infection [Unknown]

NARRATIVE: CASE EVENT DATE: 20121224
